FAERS Safety Report 8624422-8 (Version None)
Quarter: 2012Q3

REPORT INFORMATION
  Report Type: 
  Country: None (occurrence: None)
  Receive Date: 20120827
  Receipt Date: 20120823
  Transmission Date: 20120928
  Serious: Yes (Death, Other)
  Sender: FDA-Public Use
  Company Number: US-ASTRAZENECA-2008UW19398

PATIENT
  Age: 86 Year
  Sex: Male
  Weight: 54.4 kg

DRUGS (9)
  1. METOPROLOL TARTRATE [Suspect]
     Route: 048
  2. ASPIRIN [Concomitant]
  3. CRESTOR [Suspect]
     Indication: BLOOD CHOLESTEROL INCREASED
     Route: 048
  4. DOXYCYCLINE [Concomitant]
  5. CRESTOR [Suspect]
     Route: 048
  6. CRESTOR [Suspect]
     Indication: LOW DENSITY LIPOPROTEIN INCREASED
     Route: 048
  7. CRESTOR [Suspect]
     Route: 048
  8. ASPIRIN [Concomitant]
  9. NORVASC [Concomitant]

REACTIONS (9)
  - ABDOMINAL PAIN [None]
  - BLOOD CHOLESTEROL INCREASED [None]
  - CHROMATURIA [None]
  - DEATH [None]
  - WEIGHT DECREASED [None]
  - DECREASED APPETITE [None]
  - JAUNDICE [None]
  - FATIGUE [None]
  - DRUG INEFFECTIVE [None]
